FAERS Safety Report 23651761 (Version 1)
Quarter: 2024Q1

REPORT INFORMATION
  Report Type: Spontaneous
  Country: PL (occurrence: PL)
  Receive Date: 20240320
  Receipt Date: 20240320
  Transmission Date: 20240410
  Serious: Yes (Hospitalization, Other)
  Sender: FDA-Public Use
  Company Number: PL-009507513-2205POL008186

PATIENT
  Age: 71 Year
  Sex: Female

DRUGS (9)
  1. CARBOPLATIN [Suspect]
     Active Substance: CARBOPLATIN
     Indication: Hepatic cancer metastatic
     Dosage: UNK (AT THE TARGET DOSE AUC (AREA UNDER CURVE) = 5 MG/ML)
     Route: 065
     Dates: start: 20210223
  2. CARBOPLATIN [Suspect]
     Active Substance: CARBOPLATIN
     Indication: Non-small cell lung cancer
  3. CISPLATIN [Suspect]
     Active Substance: CISPLATIN
     Indication: Non-small cell lung cancer
     Dosage: 75 MG/M2, TIW (75 MILLIGRAM/SQ. METER, EVERY THREE WEEKS)
     Route: 065
     Dates: start: 20210209, end: 20210302
  4. CISPLATIN [Suspect]
     Active Substance: CISPLATIN
     Indication: Hepatic cancer metastatic
     Dosage: UNK, CYCLICAL
     Route: 065
     Dates: start: 20210209, end: 20210223
  5. LEVOTHYROXINE [Suspect]
     Active Substance: LEVOTHYROXINE\LEVOTHYROXINE SODIUM
     Indication: Product used for unknown indication
     Dosage: 75 MICROGRAM, QD
     Route: 048
     Dates: start: 20220601
  6. PEMBROLIZUMAB [Suspect]
     Active Substance: PEMBROLIZUMAB
     Indication: Non-small cell lung cancer
     Dosage: 200 MG, TIW
     Route: 042
     Dates: start: 20210209, end: 20210928
  7. PEMBROLIZUMAB [Suspect]
     Active Substance: PEMBROLIZUMAB
     Indication: Hepatic cancer metastatic
     Dosage: UNK UNK, CYCLIC
     Route: 065
     Dates: start: 20210209, end: 20210907
  8. PEMETREXED [Suspect]
     Active Substance: PEMETREXED
     Indication: Non-small cell lung cancer
     Dosage: 500 MG/M2, TIW (500 MILLIGRAM/SQ. METER, EVERY THREE WEEKS)
     Route: 042
     Dates: start: 20210209, end: 20210928
  9. PEMETREXED [Suspect]
     Active Substance: PEMETREXED
     Indication: Hepatic cancer metastatic
     Dosage: UNK, CYCLIC
     Route: 065
     Dates: start: 20210209, end: 20210907

REACTIONS (6)
  - Acute kidney injury [Recovered/Resolved]
  - Malignant neoplasm progression [Not Recovered/Not Resolved]
  - Hyperthyroidism [Unknown]
  - Autoimmune hypothyroidism [Not Recovered/Not Resolved]
  - Therapeutic product effect incomplete [Unknown]
  - Fatigue [Unknown]

NARRATIVE: CASE EVENT DATE: 20210101
